FAERS Safety Report 6667363-8 (Version None)
Quarter: 2010Q2

REPORT INFORMATION
  Report Type: 
  Country: None (occurrence: None)
  Receive Date: 20100405
  Receipt Date: 20100324
  Transmission Date: 20101027
  Serious: Yes (Other)
  Sender: FDA-Public Use
  Company Number: PHHY2010MX19042

PATIENT
  Sex: Female

DRUGS (4)
  1. DIOVAN [Suspect]
     Indication: HYPERTENSION
     Dosage: 160 MG, QD
     Route: 048
  2. CALCITRIOL [Concomitant]
     Dosage: UNK
  3. VITAMIN E [Concomitant]
     Dosage: UNK
  4. PRAVASTATIN [Concomitant]
     Dosage: UNK

REACTIONS (6)
  - BACK PAIN [None]
  - HYSTERECTOMY [None]
  - LIMB OPERATION [None]
  - NEOPLASM MALIGNANT [None]
  - PRURITUS [None]
  - RASH ERYTHEMATOUS [None]
